FAERS Safety Report 25044400 (Version 1)
Quarter: 2025Q1

REPORT INFORMATION
  Report Type: Spontaneous
  Country: US (occurrence: US)
  Receive Date: 20250306
  Receipt Date: 20250306
  Transmission Date: 20250408
  Serious: Yes (Hospitalization)
  Sender: ROCHE
  Company Number: US-ROCHE-10000217379

PATIENT
  Age: 61 Year
  Sex: Male
  Weight: 91.1 kg

DRUGS (6)
  1. ATEZOLIZUMAB [Suspect]
     Active Substance: ATEZOLIZUMAB
     Indication: Metastatic neoplasm
     Route: 065
     Dates: start: 20240206, end: 20241004
  2. GOCATAMIG [Suspect]
     Active Substance: GOCATAMIG
     Indication: Neuroendocrine carcinoma of the oesophagus
     Route: 065
     Dates: start: 20241127, end: 20250103
  3. GOCATAMIG [Suspect]
     Active Substance: GOCATAMIG
     Route: 065
     Dates: start: 20241121, end: 20241121
  4. FAMOTIDINE [Concomitant]
     Active Substance: FAMOTIDINE
     Indication: Gastrooesophageal reflux disease
     Dates: start: 2022
  5. ELIQUIS [Concomitant]
     Active Substance: APIXABAN
     Indication: Deep vein thrombosis
     Dates: start: 2022
  6. ONDANSETRON [Concomitant]
     Active Substance: ONDANSETRON
     Indication: Nausea
     Dates: start: 202402

REACTIONS (1)
  - Ileus [Recovered/Resolved]

NARRATIVE: CASE EVENT DATE: 20250109
